FAERS Safety Report 6012789-9 (Version None)
Quarter: 2008Q4

REPORT INFORMATION
  Report Type: 
  Country: None (occurrence: None)
  Receive Date: 20081219
  Receipt Date: 20081217
  Transmission Date: 20090506
  Serious: Yes (Life-Threatening, Hospitalization)
  Sender: FDA-Public Use
  Company Number: JP-JNJFOC-20081204695

PATIENT
  Age: 68 Year
  Sex: Male

DRUGS (4)
  1. ITRIZOLE [Suspect]
     Route: 042
  2. ITRIZOLE [Suspect]
     Indication: BRONCHOPULMONARY ASPERGILLOSIS
     Route: 042
  3. ITRIZOLE [Suspect]
     Route: 048
  4. LOXONIN [Concomitant]
     Route: 048

REACTIONS (2)
  - PYREXIA [None]
  - RESPIRATORY FAILURE [None]
